FAERS Safety Report 8481497-7 (Version None)
Quarter: 2012Q3

REPORT INFORMATION
  Report Type: 
  Country: None (occurrence: None)
  Receive Date: 20120702
  Receipt Date: 20120619
  Transmission Date: 20120928
  Serious: Yes (Other)
  Sender: FDA-Public Use
  Company Number: JP-VERTEX PHARMACEUTICALS INC.-AE-2012-009246

PATIENT
  Age: 67 Year
  Sex: Male

DRUGS (7)
  1. LORFENAMIN [Concomitant]
     Route: 048
     Dates: start: 20120503
  2. TELAVIC (TELAPREVIR) [Suspect]
     Indication: HEPATITIS C
     Route: 048
     Dates: start: 20120501
  3. URSO 250 [Concomitant]
     Route: 048
     Dates: end: 20120430
  4. RIBAVIRIN [Concomitant]
     Indication: HEPATITIS C
     Route: 048
     Dates: start: 20120501, end: 20120514
  5. PEGINTERFERON AFA-2B [Concomitant]
     Indication: HEPATITIS C
     Route: 058
     Dates: start: 20120501
  6. LANSOPRAZOLE [Concomitant]
     Route: 048
     Dates: start: 20120608
  7. RIBAVIRIN [Concomitant]
     Route: 048
     Dates: start: 20120515

REACTIONS (4)
  - RASH [None]
  - ANAEMIA [None]
  - HYPERURICAEMIA [None]
  - PLATELET COUNT DECREASED [None]
